FAERS Safety Report 10177944 (Version 1)
Quarter: 2014Q2

REPORT INFORMATION
  Report Type: Report from Study
  Country: NL (occurrence: NL)
  Receive Date: 20140516
  Receipt Date: 20140516
  Transmission Date: 20141212
  Serious: Yes (Death)
  Sender: FDA-Public Use
  Company Number: PHHY2014NL059211

PATIENT
  Age: 86 Year
  Sex: Female

DRUGS (2)
  1. ACLASTA [Suspect]
     Indication: OSTEOPOROSIS POSTMENOPAUSAL
     Dosage: 5 MG ONCE IN 52 WEEKS
     Route: 042
     Dates: start: 20120529
  2. ACLASTA [Suspect]
     Dosage: 5 MG ONCE IN 52 WEEKS
     Route: 042
     Dates: start: 20130529

REACTIONS (1)
  - Death [Fatal]
